FAERS Safety Report 4957761-2 (Version None)
Quarter: 2006Q1

REPORT INFORMATION
  Report Type: 
  Country: None (occurrence: None)
  Receive Date: 20060324
  Receipt Date: 20060309
  Transmission Date: 20060701
  Serious: Yes (Life-Threatening, Hospitalization, Disabling, Other)
  Sender: FDA-Public Use
  Company Number: VNL_0006_2006

PATIENT
  Age: 74 Year
  Sex: Female

DRUGS (5)
  1. APO-GO [Suspect]
     Indication: PARKINSON'S DISEASE
     Dosage: 100 MG PER24HR; SC
     Route: 058
     Dates: end: 20051230
  2. LEVODOPA [Concomitant]
  3. SINEMET [Concomitant]
  4. CITALOPRAM [Concomitant]
  5. CLONAZEPAM [Concomitant]

REACTIONS (1)
  - ANAEMIA HAEMOLYTIC AUTOIMMUNE [None]
